APPROVED DRUG PRODUCT: PROCHLORPERAZINE EDISYLATE
Active Ingredient: PROCHLORPERAZINE EDISYLATE
Strength: EQ 10MG BASE/ML
Dosage Form/Route: CONCENTRATE;ORAL
Application: A088598 | Product #001
Applicant: MORTON GROVE PHARMACEUTICALS INC
Approved: Oct 25, 1984 | RLD: No | RS: No | Type: DISCN